FAERS Safety Report 8452084-1 (Version None)
Quarter: 2012Q2

REPORT INFORMATION
  Report Type: 
  Country: None (occurrence: None)
  Receive Date: 20120620
  Receipt Date: 20120403
  Transmission Date: 20120825
  Serious: No
  Sender: FDA-Public Use
  Company Number: US-VERTEX PHARMACEUTICALS INC.-AE-2012-004607

PATIENT
  Sex: Female
  Weight: 59.02 kg

DRUGS (6)
  1. LISINOPRIL [Concomitant]
  2. INCIVEK [Suspect]
     Indication: HEPATITIS C
     Route: 048
     Dates: start: 20120329
  3. PEGASYS [Concomitant]
     Indication: HEPATITIS C
     Route: 058
     Dates: start: 20120329
  4. PREDNISOLONE [Concomitant]
  5. AMLODIPINE [Concomitant]
  6. RIBAVIRIN [Concomitant]
     Indication: HEPATITIS C
     Dates: start: 20120329

REACTIONS (7)
  - HAEMORRHOIDS [None]
  - HEAD DISCOMFORT [None]
  - ANORECTAL DISCOMFORT [None]
  - NAUSEA [None]
  - CHILLS [None]
  - DIARRHOEA [None]
  - HYPERHIDROSIS [None]
